FAERS Safety Report 8560241-9 (Version None)
Quarter: 2012Q3

REPORT INFORMATION
  Report Type: 
  Country: None (occurrence: None)
  Receive Date: 20120802
  Receipt Date: 20120719
  Transmission Date: 20120928
  Serious: Yes (Death, Life-Threatening, Hospitalization, Other)
  Sender: FDA-Public Use
  Company Number: US-ROCHE-1067092

PATIENT
  Age: 75 Year
  Sex: Female
  Weight: 49.71 kg

DRUGS (3)
  1. CARBOPLATIN [Suspect]
     Indication: OVARIAN EPITHELIAL CANCER
     Dosage: AUC=6 IV ON DAY 1 (CYCLE 1-6)
     Route: 042
     Dates: start: 20120131
  2. AVASTIN [Suspect]
     Indication: OVARIAN EPITHELIAL CANCER
     Dosage: OVER 30-90 MINUTES ON DAY 1 OF CYCLES 2+. DRUG WITHDRAWN.
     Route: 042
     Dates: start: 20120131, end: 20120221
  3. PACLITAXEL [Suspect]
     Indication: OVARIAN EPITHELIAL CANCER
     Dosage: OVER 3 HOURS ON DAY 1 (CYCLES, 1-6).
     Route: 042
     Dates: start: 20120131

REACTIONS (18)
  - HYPOTENSION [None]
  - RENAL FAILURE CHRONIC [None]
  - NEUTROPHIL COUNT DECREASED [None]
  - NAUSEA [None]
  - HYPOCALCAEMIA [None]
  - HYPOPHOSPHATAEMIA [None]
  - HYPOALBUMINAEMIA [None]
  - RESPIRATORY FAILURE [None]
  - WHITE BLOOD CELL COUNT DECREASED [None]
  - EMBOLISM [None]
  - HYPERMAGNESAEMIA [None]
  - ASPARTATE AMINOTRANSFERASE INCREASED [None]
  - ACTIVATED PARTIAL THROMBOPLASTIN TIME PROLONGED [None]
  - ENTEROCOLITIS INFECTIOUS [None]
  - SYNCOPE [None]
  - VOMITING [None]
  - FATIGUE [None]
  - DIARRHOEA [None]
